FAERS Safety Report 10184322 (Version 2)
Quarter: 2014Q2

REPORT INFORMATION
  Report Type: Spontaneous
  Country: US (occurrence: US)
  Receive Date: 20140520
  Receipt Date: 20140520
  Transmission Date: 20141212
  Serious: Yes (Other)
  Sender: FDA-Public Use
  Company Number: US-RB-049341-13

PATIENT
  Sex: Male

DRUGS (3)
  1. SUBOXONE TABLETS [Suspect]
     Indication: DRUG DEPENDENCE
     Dosage: VARIOUS DOSES; PRESCRIBED 24 MG DAILY FOR NEAR 8 YEARS
     Route: 060
     Dates: end: 2013
  2. SUBOXONE UNSPECIFIED [Suspect]
     Indication: DRUG DEPENDENCE
     Dosage: TOOK PIECES OF IT DAILY; PRESCRIBED 24 MG DAILY; TAPERED DOWN TO 4 MG DAILY
     Route: 060
     Dates: start: 2013
  3. SUBOXONE UNSPECIFIED [Suspect]
     Dosage: TAPERED DOWN TO 4 MG DAILY
     Route: 065
     Dates: start: 2013

REACTIONS (12)
  - Therapeutic response changed [Recovered/Resolved]
  - Drug dependence [Not Recovered/Not Resolved]
  - Drug withdrawal syndrome [Not Recovered/Not Resolved]
  - Confusional state [Not Recovered/Not Resolved]
  - Memory impairment [Not Recovered/Not Resolved]
  - Dysgraphia [Not Recovered/Not Resolved]
  - Pain [Recovered/Resolved]
  - Intervertebral disc protrusion [Recovered/Resolved]
  - Wrong technique in drug usage process [Not Recovered/Not Resolved]
  - Intentional underdose [Not Recovered/Not Resolved]
  - Malaise [Not Recovered/Not Resolved]
  - Feeling abnormal [Not Recovered/Not Resolved]
